FAERS Safety Report 9487742 (Version 2)
Quarter: 2013Q3

REPORT INFORMATION
  Report Type: Spontaneous
  Country: US (occurrence: US)
  Receive Date: 20130725
  Receipt Date: 20130725
  Transmission Date: 20140515
  Serious: No
  Sender: FDA-Public Use
  Company Number: US-GLAXOSMITHKLINE-A0897047A

PATIENT
  Age: 56 Year
  Sex: Male

DRUGS (1)
  1. AVANDIA [Suspect]
     Indication: TYPE 2 DIABETES MELLITUS
     Dosage: 2MG TWICE PER DAY
     Route: 048
     Dates: start: 20060410, end: 20080311

REACTIONS (5)
  - Arteriosclerosis [Not Recovered/Not Resolved]
  - Hypertension [Unknown]
  - Hyperlipidaemia [Unknown]
  - Nerve injury [Unknown]
  - Insomnia [Unknown]
